FAERS Safety Report 17083921 (Version 1)
Quarter: 2019Q4

REPORT INFORMATION
  Report Type: Spontaneous
  Country: IT (occurrence: IT)
  Receive Date: 20191127
  Receipt Date: 20191127
  Transmission Date: 20200122
  Serious: Yes (Other)
  Sender: FDA-Public Use
  Company Number: NVSC2019IT045013

PATIENT
  Age: 66 Year
  Sex: Female
  Weight: 55 kg

DRUGS (1)
  1. AFINITOR [Suspect]
     Active Substance: EVEROLIMUS
     Indication: PANCREATIC NEOPLASM
     Route: 048
     Dates: start: 20190329

REACTIONS (8)
  - Hypertriglyceridaemia [Recovered/Resolved]
  - Dyspnoea exertional [Recovered/Resolved]
  - Oedema [Recovered/Resolved]
  - Pneumonitis [Recovered/Resolved]
  - Hypercholesterolaemia [Recovered/Resolved]
  - Dyspepsia [Recovered/Resolved]
  - Asthenia [Recovered/Resolved]
  - Nausea [Recovered/Resolved]

NARRATIVE: CASE EVENT DATE: 20190731
